FAERS Safety Report 6060222-3 (Version None)
Quarter: 2009Q1

REPORT INFORMATION
  Report Type: 
  Country: None (occurrence: None)
  Receive Date: 20090129
  Receipt Date: 20090122
  Transmission Date: 20090719
  Serious: Yes (Death)
  Sender: FDA-Public Use
  Company Number: SPV1-2009-00100

PATIENT
  Age: 7 Year
  Sex: Male

DRUGS (2)
  1. ELAPRASE [Suspect]
     Indication: MUCOPOLYSACCHARIDOSIS II
     Dosage: 15 MG, 1X/WEEK, IV DRIP
     Route: 041
     Dates: start: 20080708
  2. CAPTOPRIL [Concomitant]

REACTIONS (3)
  - BRONCHIAL OBSTRUCTION [None]
  - RESPIRATORY FAILURE [None]
  - VARICELLA [None]
